FAERS Safety Report 8598960-0 (Version None)
Quarter: 2012Q3

REPORT INFORMATION
  Report Type: 
  Country: None (occurrence: None)
  Receive Date: 20120803
  Receipt Date: 20120719
  Transmission Date: 20120928
  Serious: Yes (Death)
  Sender: FDA-Public Use
  Company Number: QSC-2012-0141

PATIENT
  Age: 71 Year
  Sex: Male

DRUGS (3)
  1. H.P. ACTHAR GEL [Suspect]
     Indication: FOCAL SEGMENTAL GLOMERULOSCLEROSIS
     Dosage: 80 UNITS, BIW, SUBCUTANEOUS
     Route: 058
     Dates: start: 20120605, end: 20120628
  2. CORTICOSTEROIDS [Concomitant]
  3. CELLCEPT [Concomitant]

REACTIONS (2)
  - SUDDEN DEATH [None]
  - ACUTE CORONARY SYNDROME [None]
